FAERS Safety Report 10284914 (Version 1)
Quarter: 2014Q3

REPORT INFORMATION
  Report Type: Spontaneous
  Country: US (occurrence: US)
  Receive Date: 20140708
  Receipt Date: 20140708
  Transmission Date: 20150326
  Serious: Yes (Death, Hospitalization)
  Sender: FDA-Public Use
  Company Number: US-BRISTOL-MYERS SQUIBB COMPANY-21133350

PATIENT
  Age: 61 Year
  Sex: Female
  Weight: 93.5 kg

DRUGS (13)
  1. ZYRTEC [Concomitant]
     Active Substance: CETIRIZINE HYDROCHLORIDE
     Dosage: 1DF= 1 TABLET
     Route: 048
  2. LANTUS [Concomitant]
     Active Substance: INSULIN GLARGINE
     Dosage: 1DF=100 UNIT/ML?1DF=40 UNITS TWICE
     Route: 058
  3. VICODIN [Concomitant]
     Active Substance: ACETAMINOPHEN\HYDROCODONE BITARTRATE
     Indication: PAIN
     Dosage: 1DF=5-500MG TABS?AS NECESSARY
     Route: 048
  4. MULTIVITAMIN [Concomitant]
     Active Substance: VITAMINS
     Dosage: 1DF=1TABS
  5. GABAPENTIN. [Concomitant]
     Active Substance: GABAPENTIN
     Dosage: CAPS
     Route: 048
  6. K-DUR [Concomitant]
     Active Substance: POTASSIUM CHLORIDE
     Dosage: TABS
     Route: 048
  7. ALLOPURINOL. [Concomitant]
     Active Substance: ALLOPURINOL
     Dosage: TABS
     Route: 048
  8. FUROSEMIDE. [Concomitant]
     Active Substance: FUROSEMIDE
     Dosage: TABS?2 AT DAY ?1 AT NIGHT
     Route: 048
  9. UNITHROID [Concomitant]
     Active Substance: LEVOTHYROXINE SODIUM
     Dosage: 1DF=1TABS
  10. COLCHICINE. [Concomitant]
     Active Substance: COLCHICINE
     Dosage: 1DF=1 TABS
  11. BYETTA [Suspect]
     Active Substance: EXENATIDE
     Dates: start: 20061130, end: 200910
  12. TRIAMTERENE + HCTZ [Concomitant]
     Dosage: 1DF=37.5-25 MG CAPS
     Route: 048
  13. HUMALOG [Concomitant]
     Active Substance: INSULIN LISPRO
     Dosage: HUMALOG 100 UNIT/ML?1DF=37 UNITS THRICE
     Route: 058

REACTIONS (1)
  - Adenocarcinoma pancreas [Fatal]

NARRATIVE: CASE EVENT DATE: 20120329
